FAERS Safety Report 5732821-7 (Version None)
Quarter: 2008Q2

REPORT INFORMATION
  Report Type: 
  Country: None (occurrence: None)
  Receive Date: 20080507
  Receipt Date: 20080507
  Transmission Date: 20081010
  Serious: Yes (Hospitalization)
  Sender: FDA-Public Use
  Company Number: None

PATIENT
  Sex: Male

DRUGS (1)
  1. ISOVUE-300 [Suspect]
     Indication: DYSPNOEA
     Dosage: 100 ML ONCE IV BOLUS; ONCE
     Route: 040
     Dates: start: 20080327, end: 20080327

REACTIONS (5)
  - BRADYCARDIA [None]
  - CARDIAC ARREST [None]
  - DRUG HYPERSENSITIVITY [None]
  - DYSPNOEA [None]
  - WHEEZING [None]
